FAERS Safety Report 9258737 (Version 2)
Quarter: 2013Q2

REPORT INFORMATION
  Report Type: Spontaneous
  Country: IT (occurrence: IT)
  Receive Date: 20130426
  Receipt Date: 20130502
  Transmission Date: 20140414
  Serious: Yes (Other)
  Sender: FDA-Public Use
  Company Number: IT-009507513-1304USA009754

PATIENT
  Age: 53 Year
  Sex: Male

DRUGS (5)
  1. REBETOL [Suspect]
     Indication: HEPATITIS C
     Dosage: 10.6 MG/KG/DAY IN 2 DIVIDED DOSES
     Dates: start: 200705, end: 2007
  2. PEGINTERFERON ALFA-2A [Suspect]
     Indication: HEPATITIS C
     Dosage: 135 MICROGRAM, QW
     Route: 058
     Dates: start: 200705, end: 2007
  3. PEGINTERFERON ALFA-2A [Suspect]
     Dosage: 180 MICROGRAM, QW
     Route: 058
     Dates: start: 2007, end: 2007
  4. ETANERCEPT [Suspect]
     Indication: PSORIASIS
     Dosage: 50 MG, BIW
     Route: 058
     Dates: start: 200612, end: 200705
  5. ETANERCEPT [Suspect]
     Dosage: 50 MG, QW
     Route: 058
     Dates: start: 200705

REACTIONS (3)
  - Glossopharyngeal neuralgia [Recovered/Resolved]
  - Neutropenia [Recovered/Resolved]
  - Anaemia [Recovered/Resolved]
